FAERS Safety Report 20176042 (Version 1)
Quarter: 2021Q4

REPORT INFORMATION
  Report Type: Spontaneous
  Country: CA (occurrence: CA)
  Receive Date: 20211213
  Receipt Date: 20211213
  Transmission Date: 20220303
  Serious: Yes (Other)
  Sender: FDA-Public Use
  Company Number: CA-TEVA-2021-CA-1986471

PATIENT
  Age: 67 Year
  Sex: Female
  Weight: 103 kg

DRUGS (15)
  1. METHOTREXATE [Suspect]
     Active Substance: METHOTREXATE
     Indication: Product used for unknown indication
     Route: 065
  2. ALENDRONATE SODIUM [Concomitant]
     Active Substance: ALENDRONATE SODIUM
  3. CALCIUM [Concomitant]
     Active Substance: CALCIUM
  4. CELEBREX [Concomitant]
     Active Substance: CELECOXIB
  5. CITALOPRAM [Concomitant]
     Active Substance: CITALOPRAM HYDROBROMIDE
  6. FOLIC ACID [Concomitant]
     Active Substance: FOLIC ACID
  7. HYDROXYCHLOROQUINE [Concomitant]
     Active Substance: HYDROXYCHLOROQUINE
  8. PREDNISONE [Concomitant]
     Active Substance: PREDNISONE
  9. ROFECOXIB [Concomitant]
     Active Substance: ROFECOXIB
  10. ALBUTEROL [Concomitant]
     Active Substance: ALBUTEROL
  11. GLYCOPYRROLATE [Concomitant]
     Active Substance: GLYCOPYRROLATE
  12. SYNTHROID [Concomitant]
     Active Substance: LEVOTHYROXINE SODIUM
  13. TOPIRAMATE [Concomitant]
     Active Substance: TOPIRAMATE
  14. TYLENOL [Concomitant]
     Active Substance: ACETAMINOPHEN
  15. VITAMIN D [COLECALCIFEROL]] [Concomitant]

REACTIONS (8)
  - Arthralgia [Recovered/Resolved]
  - Arthritis [Recovered/Resolved]
  - C-reactive protein increased [Recovered/Resolved]
  - Condition aggravated [Recovered/Resolved]
  - Finger deformity [Recovered/Resolved]
  - Inflammation [Recovered/Resolved]
  - Nodule [Recovered/Resolved]
  - Pain in extremity [Recovered/Resolved]
